FAERS Safety Report 6237421-0 (Version None)
Quarter: 2009Q2

REPORT INFORMATION
  Report Type: 
  Country: None (occurrence: None)
  Receive Date: 20090619
  Receipt Date: 20090617
  Transmission Date: 20091009
  Serious: Yes (Other)
  Sender: FDA-Public Use
  Company Number: US-AMGEN-US347313

PATIENT
  Sex: Female

DRUGS (9)
  1. NPLATE [Suspect]
     Indication: IDIOPATHIC THROMBOCYTOPENIC PURPURA
     Route: 058
     Dates: start: 20090109, end: 20090430
  2. PREDNISONE [Concomitant]
     Route: 048
  3. MULTI-VITAMINS [Concomitant]
     Route: 065
  4. PROTONIX [Concomitant]
     Route: 048
  5. CALCIUM CARBONATE [Concomitant]
     Route: 048
  6. VITAMIN D [Concomitant]
     Route: 048
  7. FOLIC ACID [Concomitant]
     Route: 048
  8. VITAMIN B COMPLEX CAP [Concomitant]
     Route: 048
  9. TORSEMIDE [Concomitant]
     Route: 048

REACTIONS (2)
  - DRUG INEFFECTIVE [None]
  - OEDEMA PERIPHERAL [None]
